FAERS Safety Report 19590708 (Version 4)
Quarter: 2021Q3

REPORT INFORMATION
  Report Type: Spontaneous
  Country: FR (occurrence: FR)
  Receive Date: 20210722
  Receipt Date: 20210825
  Transmission Date: 20211014
  Serious: Yes (Hospitalization, Other)
  Sender: FDA-Public Use
  Company Number: FR-AUROBINDO-AUR-APL-2021-031361

PATIENT
  Age: 53 Year
  Sex: Female

DRUGS (2)
  1. IBUPROFEN. [Suspect]
     Active Substance: IBUPROFEN
     Dosage: UNK
     Route: 065
  2. IBUPROFEN. [Suspect]
     Active Substance: IBUPROFEN
     Indication: SELF-MEDICATION
     Dosage: 400 MILLIGRAM 1 TOTAL
     Route: 065

REACTIONS (13)
  - Epiglottic oedema [Recovering/Resolving]
  - Hyperthermia [Recovering/Resolving]
  - Bacteraemia [Recovering/Resolving]
  - Leukocytosis [Recovering/Resolving]
  - Infection susceptibility increased [Unknown]
  - Pasteurella infection [Recovering/Resolving]
  - Laryngeal dyspnoea [Recovering/Resolving]
  - Epiglottitis [Recovering/Resolving]
  - Dysphonia [Recovering/Resolving]
  - Ear pain [Recovering/Resolving]
  - Odynophagia [Recovering/Resolving]
  - Chills [Recovering/Resolving]
  - Influenza [Recovering/Resolving]
